FAERS Safety Report 11342135 (Version 4)
Quarter: 2015Q4

REPORT INFORMATION
  Report Type: Report from Study
  Country: ES (occurrence: ES)
  Receive Date: 20150805
  Receipt Date: 20151117
  Transmission Date: 20160304
  Serious: Yes (Other)
  Sender: FDA-Public Use
  Company Number: ES-UCBSA-2015024523

PATIENT
  Sex: Female

DRUGS (1)
  1. LEVETIRACETAM. [Suspect]
     Active Substance: LEVETIRACETAM
     Indication: EPILEPSY
     Dosage: DAILY DOSE FIRST TRIMESTER : 2000 MONOTHERAPY

REACTIONS (2)
  - Pregnancy [Unknown]
  - Stillbirth [Unknown]
